FAERS Safety Report 5125059-8 (Version None)
Quarter: 2006Q4

REPORT INFORMATION
  Report Type: 
  Country: None (occurrence: None)
  Receive Date: 20061010
  Receipt Date: 20061010
  Transmission Date: 20070319
  Serious: Yes (Hospitalization)
  Sender: FDA-Public Use
  Company Number: None

PATIENT
  Age: 71 Year
  Sex: Male

DRUGS (11)
  1. IBUPROFEN [Suspect]
     Indication: PAIN
     Dosage: 600 MG Q8H
     Dates: start: 20060626
  2. PREDNISONE TAB [Suspect]
     Indication: INFLAMMATION
     Dosage: WEANING 40 MG-5MG QD
     Dates: start: 20060812
  3. AZITHROMYCIN [Concomitant]
  4. TEMAZEPAM [Concomitant]
  5. LORTAB [Concomitant]
  6. QUETIAPINE [Concomitant]
  7. BACLOFEN [Concomitant]
  8. LISINOPRIL [Concomitant]
  9. LORATADINE [Concomitant]
  10. ADALAT CC [Concomitant]
  11. SENOKOT [Concomitant]

REACTIONS (1)
  - PEPTIC ULCER [None]
